FAERS Safety Report 13396414 (Version 1)
Quarter: 2017Q2

REPORT INFORMATION
  Report Type: Spontaneous
  Country: US (occurrence: US)
  Receive Date: 20170403
  Receipt Date: 20170403
  Transmission Date: 20170830
  Serious: No
  Sender: FDA-Public Use
  Company Number: US-JNJFOC-20170126515

PATIENT
  Age: 81 Year
  Sex: Female
  Weight: 81.19 kg

DRUGS (2)
  1. INVOKANA [Suspect]
     Active Substance: CANAGLIFLOZIN
     Indication: DIABETES MELLITUS
     Route: 048
     Dates: start: 201612
  2. GLIMEPIRIDE. [Concomitant]
     Active Substance: GLIMEPIRIDE
     Indication: DIABETES MELLITUS
     Dosage: START DATE: PRIOR TO START OF CANAGLIFLOZIN
     Route: 065

REACTIONS (6)
  - Weight decreased [Not Recovered/Not Resolved]
  - Gingival disorder [Unknown]
  - Fear [Unknown]
  - Therapeutic response unexpected [Unknown]
  - Vaginal discharge [Not Recovered/Not Resolved]
  - Therapeutic response increased [Unknown]

NARRATIVE: CASE EVENT DATE: 201612
